FAERS Safety Report 6074918-0 (Version None)
Quarter: 2009Q1

REPORT INFORMATION
  Report Type: 
  Country: None (occurrence: None)
  Receive Date: 20090212
  Receipt Date: 20080509
  Transmission Date: 20090719
  Serious: No
  Sender: FDA-Public Use
  Company Number: US-TYCO HEALTHCARE/MALLINCKRODT-T200800814

PATIENT

DRUGS (2)
  1. GALLIUM CITRATE GA 67 [Suspect]
     Indication: SCAN GALLIUM
     Dosage: 6 MCI, SINGLE
     Route: 042
     Dates: start: 20080506, end: 20080506
  2. OXYGEN [Concomitant]
     Indication: DRUG USE FOR UNKNOWN INDICATION
     Route: 045

REACTIONS (1)
  - DYSPNOEA [None]
